FAERS Safety Report 11284791 (Version 1)
Quarter: 2015Q3

REPORT INFORMATION
  Report Type: Report from Study
  Country: JP (occurrence: JP)
  Receive Date: 20150720
  Receipt Date: 20150720
  Transmission Date: 20151125
  Serious: Yes (Other)
  Sender: FDA-Public Use
  Company Number: JP-EISAI MEDICAL RESEARCH-EC-2015-008621

PATIENT
  Age: 85 Year
  Sex: Female

DRUGS (16)
  1. CARDENALIN [Concomitant]
     Active Substance: DOXAZOSIN MESYLATE
  2. ADALAT [Concomitant]
     Active Substance: NIFEDIPINE
  3. ARICEPT [Suspect]
     Active Substance: DONEPEZIL HYDROCHLORIDE
     Indication: DEMENTIA ALZHEIMER^S TYPE
     Route: 048
     Dates: start: 20131108, end: 20131125
  4. SUNRYTHM [Concomitant]
     Active Substance: PILSICAINIDE HYDROCHLORIDE
  5. MEMARY [Concomitant]
     Active Substance: MEMANTINE HYDROCHLORIDE
     Indication: DEMENTIA ALZHEIMER^S TYPE
     Route: 048
     Dates: start: 20140213, end: 20140302
  6. BUP-4 [Concomitant]
     Active Substance: PROPIVERINE
  7. ARICEPT [Suspect]
     Active Substance: DONEPEZIL HYDROCHLORIDE
     Route: 048
     Dates: start: 20131126
  8. MEMARY [Concomitant]
     Active Substance: MEMANTINE HYDROCHLORIDE
     Route: 048
     Dates: start: 20140317
  9. TANATRIL [Concomitant]
     Active Substance: IMIDAPRIL
  10. MEMARY [Concomitant]
     Active Substance: MEMANTINE HYDROCHLORIDE
     Route: 048
     Dates: start: 20140310, end: 20140316
  11. MEMARY [Concomitant]
     Active Substance: MEMANTINE HYDROCHLORIDE
     Route: 048
     Dates: start: 20140303, end: 20140309
  12. TALION [Concomitant]
     Active Substance: BEPOTASTINE
  13. NEXIUM [Concomitant]
     Active Substance: ESOMEPRAZOLE MAGNESIUM
  14. GASMOTIN [Concomitant]
     Active Substance: MOSAPRIDE CITRATE
  15. ENSURE LIQUID [Concomitant]
  16. VESICARE [Concomitant]
     Active Substance: SOLIFENACIN SUCCINATE

REACTIONS (1)
  - Delirium [Recovering/Resolving]

NARRATIVE: CASE EVENT DATE: 20140213
